FAERS Safety Report 16437737 (Version 2)
Quarter: 2019Q3

REPORT INFORMATION
  Report Type: Report from Study
  Country: BR (occurrence: BR)
  Receive Date: 20190616
  Receipt Date: 20190822
  Transmission Date: 20191004
  Serious: Yes (Hospitalization)
  Sender: FDA-Public Use
  Company Number: BR-BIOGEN-2019BI00751435

PATIENT
  Age: 24 Year
  Sex: Male

DRUGS (1)
  1. AVONEX [Suspect]
     Active Substance: INTERFERON BETA-1A
     Indication: MULTIPLE SCLEROSIS
     Route: 030
     Dates: start: 20181001

REACTIONS (8)
  - Feeling of despair [Unknown]
  - Neuromyelitis optica spectrum disorder [Not Recovered/Not Resolved]
  - Headache [Not Recovered/Not Resolved]
  - Vision blurred [Unknown]
  - Pain [Unknown]
  - Depression [Unknown]
  - Multiple sclerosis [Not Recovered/Not Resolved]
  - Facial paralysis [Unknown]

NARRATIVE: CASE EVENT DATE: 201812
